FAERS Safety Report 8871128 (Version 1)
Quarter: 2012Q4

REPORT INFORMATION
  Report Type: 
  Country: US (occurrence: US)
  Receive Date: 20121026
  Receipt Date: 20121026
  Transmission Date: 20130627
  Serious: No
  Sender: FDA-Public Use
  Company Number: US-AMGEN-USASP2012042315

PATIENT
  Age: 60 Year
  Sex: Female
  Weight: 175 kg

DRUGS (20)
  1. ENBREL [Suspect]
     Indication: PSORIATIC ARTHROPATHY
     Dosage: 50 mg, 2 times/wk
     Route: 058
  2. HUMIRA [Concomitant]
     Dosage: 40 mg/0.8
     Route: 058
     Dates: start: 20120425
  3. JANUMET [Concomitant]
     Dosage: 50-1000
     Route: 048
  4. CELEBREX [Concomitant]
     Dosage: 200 mg, UNK
     Route: 048
  5. ZOLOFT [Concomitant]
     Dosage: 25 mg, UNK
     Route: 048
  6. TRAZODONE [Concomitant]
     Dosage: 50 mg, UNK
     Route: 048
  7. OMEPRAZOLE [Concomitant]
     Dosage: 10 mg, UNK
     Route: 048
  8. ACTONEL [Concomitant]
     Dosage: 150 mg, UNK
     Route: 048
  9. TRIAMCINOLON                       /00031901/ [Concomitant]
     Dosage: 0.025%
  10. HYDROCORT                          /00028602/ [Concomitant]
     Dosage: 0.5%
  11. ALLOPURINOL [Concomitant]
     Dosage: 300 mg, UNK
     Route: 048
  12. VECTICAL [Concomitant]
     Dosage: 3 mcg/gm
  13. SPIRONO [Concomitant]
     Dosage: 25/25
  14. POTASSIUM [Concomitant]
     Dosage: 75 mg, UNK
     Route: 048
  15. ACTOS [Concomitant]
     Dosage: 15 mg, UNK
     Route: 048
  16. VYTORIN [Concomitant]
     Dosage: 10/10 mg
     Route: 048
  17. TYLENOL /00020001/ [Concomitant]
     Dosage: 500 mg, UNK
     Route: 048
  18. RANITIDINE [Concomitant]
     Dosage: 150/6 ml UNK, UNK
     Route: 058
  19. LEVOTHYROXINE [Concomitant]
     Dosage: 100 mcg
     Route: 058
  20. FUROSEMIDE [Concomitant]
     Dosage: 40 mg/4 ml

REACTIONS (1)
  - Drug ineffective [Unknown]
